FAERS Safety Report 14706921 (Version 1)
Quarter: 2018Q2

REPORT INFORMATION
  Report Type: Spontaneous
  Country: US (occurrence: US)
  Receive Date: 20180403
  Receipt Date: 20180403
  Transmission Date: 20180711
  Serious: Yes (Other)
  Sender: FDA-Public Use
  Company Number: US-CIPLA LTD.-2018US14045

PATIENT

DRUGS (4)
  1. ETOPOSIDE. [Suspect]
     Active Substance: ETOPOSIDE
     Indication: MEDULLOBLASTOMA RECURRENT
     Dosage: 100 MG/M2 FOR 2 DAYS (6 CYCLES); CYCLICAL
     Route: 065
  2. CISPLATIN. [Suspect]
     Active Substance: CISPLATIN
     Indication: MEDULLOBLASTOMA RECURRENT
     Dosage: 75 MG/M2 (6 CYCLES) FOR 1 DAY; CYCLICAL
     Route: 065
  3. TOPOTECAN [Suspect]
     Active Substance: TOPOTECAN HYDROCHLORIDE
     Indication: MEDULLOBLASTOMA RECURRENT
     Dosage: 2 MG/M2 FOR 4 DAYS (6 CYCLES); CYCLICAL
     Route: 065
  4. CYCLOPHOSPHAMIDE. [Suspect]
     Active Substance: CYCLOPHOSPHAMIDE
     Indication: MEDULLOBLASTOMA RECURRENT
     Dosage: 2100 MG/M2 FOR 2 DAYS (6 CYCLES); CYCLICAL
     Route: 065

REACTIONS (3)
  - Mucosal inflammation [Unknown]
  - Infection [Unknown]
  - Thrombocytopenia [Unknown]
